FAERS Safety Report 14373545 (Version 9)
Quarter: 2020Q3

REPORT INFORMATION
  Report Type: Report from Study
  Country: US (occurrence: US)
  Receive Date: 20180110
  Receipt Date: 20200925
  Transmission Date: 20201102
  Serious: Yes (Hospitalization, Other)
  Sender: FDA-Public Use
  Company Number: US-JAZZ-2018-US-000131

PATIENT
  Age: 61 Year
  Sex: Female

DRUGS (12)
  1. XYREM [Suspect]
     Active Substance: SODIUM OXYBATE
     Dosage: 7.5 G, QD
     Route: 048
     Dates: start: 201011, end: 201012
  2. XYREM [Suspect]
     Active Substance: SODIUM OXYBATE
     Indication: CATAPLEXY
     Dosage: DOSE ADJUSTMENTS
     Route: 048
     Dates: start: 200308, end: 200808
  3. XYREM [Suspect]
     Active Substance: SODIUM OXYBATE
     Dosage: 3.75 G, BID
     Route: 048
     Dates: start: 201012, end: 201106
  4. XYREM [Suspect]
     Active Substance: SODIUM OXYBATE
     Dosage: UNKNOWN DOSE
     Route: 048
     Dates: end: 201805
  5. IPRATROPIUM/ALBUTEROL [Suspect]
     Active Substance: ALBUTEROL\IPRATROPIUM
     Indication: PRODUCT USED FOR UNKNOWN INDICATION
  6. MODAFINIL. [Suspect]
     Active Substance: MODAFINIL
     Indication: PRODUCT USED FOR UNKNOWN INDICATION
  7. XYREM [Suspect]
     Active Substance: SODIUM OXYBATE
     Indication: NARCOLEPSY
     Dosage: 2.25 G, BID
     Route: 048
     Dates: start: 200306, end: 200308
  8. XYREM [Suspect]
     Active Substance: SODIUM OXYBATE
     Dosage: 5 G, BID
     Route: 048
     Dates: start: 200808, end: 2009
  9. CHANTIX [Suspect]
     Active Substance: VARENICLINE TARTRATE
     Indication: PRODUCT USED FOR UNKNOWN INDICATION
  10. RITALIN [Suspect]
     Active Substance: METHYLPHENIDATE HYDROCHLORIDE
     Indication: PRODUCT USED FOR UNKNOWN INDICATION
  11. MICARDIS [Concomitant]
     Active Substance: TELMISARTAN
     Indication: PRODUCT USED FOR UNKNOWN INDICATION
  12. XYREM [Suspect]
     Active Substance: SODIUM OXYBATE
     Dosage: 4.5 G, BID
     Route: 048
     Dates: start: 201106, end: 2014

REACTIONS (33)
  - Cervical spinal stenosis [Unknown]
  - Hyperglycaemia [Unknown]
  - Sleep apnoea syndrome [Not Recovered/Not Resolved]
  - Unevaluable event [Unknown]
  - Illness [Unknown]
  - Nausea [Unknown]
  - Neck injury [Recovered/Resolved]
  - Inner ear disorder [Unknown]
  - Vertigo [Unknown]
  - Arthralgia [Unknown]
  - Feeling abnormal [Recovering/Resolving]
  - Somnambulism [Unknown]
  - Tremor [Not Recovered/Not Resolved]
  - Pneumonia [Recovered/Resolved]
  - Knee operation [Recovering/Resolving]
  - Mood altered [Unknown]
  - Irritability [Unknown]
  - Diarrhoea [Unknown]
  - Memory impairment [Not Recovered/Not Resolved]
  - Pre-existing condition improved [Unknown]
  - Bronchitis [Recovering/Resolving]
  - Depressed mood [Recovering/Resolving]
  - Heart rate increased [Unknown]
  - Chronic obstructive pulmonary disease [Recovered/Resolved]
  - Musculoskeletal discomfort [Recovered/Resolved]
  - Back injury [Recovering/Resolving]
  - Dehydration [Unknown]
  - Arthritis [Unknown]
  - Fatigue [Not Recovered/Not Resolved]
  - Feeling jittery [Unknown]
  - Hypertension [Recovered/Resolved]
  - Intervertebral disc degeneration [Unknown]
  - Enuresis [Unknown]

NARRATIVE: CASE EVENT DATE: 2018
